FAERS Safety Report 11511215 (Version 1)
Quarter: 2015Q3

REPORT INFORMATION
  Report Type: Report from Study
  Country: BR (occurrence: BR)
  Receive Date: 20150915
  Receipt Date: 20150915
  Transmission Date: 20151125
  Serious: Yes (Death)
  Sender: FDA-Public Use
  Company Number: PHHY2015BR111035

PATIENT
  Sex: Female

DRUGS (4)
  1. RIVOTRIL [Suspect]
     Active Substance: CLONAZEPAM
     Indication: AGITATION
     Dosage: 1 DF, QHS
     Route: 065
  2. RIVOTRIL [Suspect]
     Active Substance: CLONAZEPAM
     Indication: SLEEP DISORDER
  3. EXELON PATCH [Suspect]
     Active Substance: RIVASTIGMINE
     Indication: PROPHYLAXIS
     Dosage: 1 DF, QD
     Route: 062
  4. EXELON PATCH [Suspect]
     Active Substance: RIVASTIGMINE
     Indication: AGGRESSION

REACTIONS (2)
  - Osteoarthritis [Unknown]
  - Death [Fatal]
